FAERS Safety Report 5912440-X (Version None)
Quarter: 2008Q4

REPORT INFORMATION
  Report Type: 
  Country: None (occurrence: None)
  Receive Date: 20081008
  Receipt Date: 20080926
  Transmission Date: 20090506
  Serious: Yes (Hospitalization)
  Sender: FDA-Public Use
  Company Number: FR-ELI_LILLY_AND_COMPANY-FR200809006000

PATIENT
  Sex: Male

DRUGS (2)
  1. ALIMTA [Suspect]
     Indication: LUNG ADENOCARCINOMA METASTATIC
     Dosage: 1 D/F, UNKNOWN
     Route: 042
     Dates: start: 20071219, end: 20071219
  2. LEUCOVORIN CALCIUM [Concomitant]
     Dosage: UNK, UNKNOWN
     Route: 065

REACTIONS (4)
  - AGRANULOCYTOSIS [None]
  - PANCYTOPENIA [None]
  - PYREXIA [None]
  - VOMITING [None]
